FAERS Safety Report 8444950-8 (Version None)
Quarter: 2012Q2

REPORT INFORMATION
  Report Type: 
  Country: None (occurrence: None)
  Receive Date: 20120618
  Receipt Date: 20120605
  Transmission Date: 20120825
  Serious: Yes (Hospitalization, Other)
  Sender: FDA-Public Use
  Company Number: JP-ROCHE-1023189

PATIENT
  Sex: Male
  Weight: 64 kg

DRUGS (6)
  1. ACTEMRA [Suspect]
     Indication: RHEUMATOID ARTHRITIS
     Route: 041
     Dates: start: 20101221, end: 20110510
  2. RHEUMATREX [Suspect]
     Route: 048
     Dates: start: 20100301
  3. PREDNISOLONE [Suspect]
     Route: 048
     Dates: start: 20110802
  4. ACTEMRA [Suspect]
     Route: 041
     Dates: start: 20110607, end: 20111122
  5. RHEUMATREX [Suspect]
     Indication: RHEUMATOID ARTHRITIS
     Route: 048
     Dates: start: 20070601, end: 20100301
  6. PREDNISOLONE [Suspect]
     Indication: RHEUMATOID ARTHRITIS
     Route: 048
     Dates: start: 20101228, end: 20110801

REACTIONS (8)
  - COLONIC POLYP [None]
  - PERITONITIS [None]
  - LARGE INTESTINE PERFORATION [None]
  - DIVERTICULITIS [None]
  - GAMMA-GLUTAMYLTRANSFERASE INCREASED [None]
  - RED BLOOD CELL COUNT DECREASED [None]
  - ABDOMINAL ABSCESS [None]
  - ASCITES [None]
